FAERS Safety Report 4524192-9 (Version None)
Quarter: 2004Q4

REPORT INFORMATION
  Report Type: 
  Country: None (occurrence: None)
  Receive Date: 20041119
  Receipt Date: 20041017
  Transmission Date: 20050328
  Serious: No
  Sender: FDA-Public Use
  Company Number: PHEH2004US11232

PATIENT
  Age: 19 Year
  Sex: Female

DRUGS (1)
  1. ZELNORM [Suspect]
     Indication: IRRITABLE BOWEL SYNDROME
     Dates: start: 20041014

REACTIONS (2)
  - ABDOMINAL PAIN UPPER [None]
  - FAECES DISCOLOURED [None]
